FAERS Safety Report 13201500 (Version 1)
Quarter: 2017Q1

REPORT INFORMATION
  Report Type: Spontaneous
  Country: US (occurrence: US)
  Receive Date: 20170208
  Receipt Date: 20170208
  Transmission Date: 20170428
  Serious: No
  Sender: FDA-Public Use
  Company Number: US-AMGEN-USASP2016069047

PATIENT

DRUGS (4)
  1. TAXOL [Concomitant]
     Active Substance: PACLITAXEL
     Dosage: UNK
     Dates: start: 20151214
  2. HERCEPTIN [Concomitant]
     Active Substance: TRASTUZUMAB
     Dosage: UNK
     Dates: start: 20151214
  3. PERJETA [Concomitant]
     Active Substance: PERTUZUMAB
     Dosage: UNK
     Dates: start: 20151214
  4. NEULASTA [Suspect]
     Active Substance: PEGFILGRASTIM
     Indication: PRODUCT USED FOR UNKNOWN INDICATION
     Dosage: UNK
     Route: 065

REACTIONS (8)
  - Asthenia [Unknown]
  - Bone pain [Unknown]
  - Feeling abnormal [Unknown]
  - Nausea [Unknown]
  - Mobility decreased [Unknown]
  - Pain [Unknown]
  - Arthralgia [Unknown]
  - Myalgia [Unknown]
